FAERS Safety Report 16952178 (Version 1)
Quarter: 2019Q4

REPORT INFORMATION
  Report Type: Report from Study
  Country: CN (occurrence: CN)
  Receive Date: 20191023
  Receipt Date: 20191023
  Transmission Date: 20200122
  Serious: Yes (Death, Other)
  Sender: FDA-Public Use
  Company Number: CN-ROCHE-2181425

PATIENT
  Age: 70 Year
  Sex: Female
  Weight: 56 kg

DRUGS (1)
  1. AVASTIN [Suspect]
     Active Substance: BEVACIZUMAB
     Indication: COLON CANCER
     Route: 041
     Dates: start: 20170701

REACTIONS (6)
  - Cataract [Unknown]
  - Death [Fatal]
  - Cough [Unknown]
  - Platelet count decreased [Unknown]
  - Nasopharyngitis [Unknown]
  - Asthenia [Unknown]

NARRATIVE: CASE EVENT DATE: 20191015
